FAERS Safety Report 5245212-2 (Version None)
Quarter: 2007Q1

REPORT INFORMATION
  Report Type: 
  Country: None (occurrence: None)
  Receive Date: 20070223
  Receipt Date: 20070215
  Transmission Date: 20070707
  Serious: Yes (Hospitalization)
  Sender: FDA-Public Use
  Company Number: JP-JNJFOC-20061206862

PATIENT
  Sex: Male
  Weight: 62.8 kg

DRUGS (10)
  1. MICONAZOLE [Suspect]
     Indication: OESOPHAGEAL CANDIDIASIS
     Route: 048
     Dates: start: 20061202, end: 20061215
  2. TACROLIMUS HYDRATE [Interacting]
     Indication: IMMUNOSUPPRESSANT DRUG THERAPY
     Route: 048
  3. PREDNISOLONE [Concomitant]
     Indication: IMMUNOSUPPRESSANT DRUG THERAPY
     Route: 048
  4. SULFAMETHOXAZOLE + TRIMETHOPRIM [Concomitant]
     Indication: INFECTION PROPHYLAXIS
     Route: 048
  5. VALGANCICLOVIR HCL [Concomitant]
     Indication: INFECTION PROPHYLAXIS
     Route: 048
  6. MYCOPHENOLATE MOFETIL [Concomitant]
     Indication: IMMUNOSUPPRESSANT DRUG THERAPY
     Route: 048
  7. ERYTHROMYCIN ETHYLSUCCINATE [Concomitant]
     Indication: INFECTION
     Route: 048
  8. LANSOPRAZOLE [Concomitant]
     Indication: STEROID THERAPY
     Route: 048
  9. DIGOXIN [Concomitant]
     Indication: TACHYCARDIA
     Route: 048
     Dates: start: 20061129, end: 20061202
  10. ALENDRONATE SODIUM [Concomitant]
     Indication: TACHYCARDIA
     Route: 048
     Dates: start: 20061205, end: 20061208

REACTIONS (3)
  - DRUG INTERACTION POTENTIATION [None]
  - DRUG LEVEL BELOW THERAPEUTIC [None]
  - DRUG LEVEL INCREASED [None]
